FAERS Safety Report 4666770-2 (Version None)
Quarter: 2005Q2

REPORT INFORMATION
  Report Type: 
  Country: None (occurrence: None)
  Receive Date: 20050518
  Receipt Date: 20040413
  Transmission Date: 20051028
  Serious: No
  Sender: FDA-Public Use
  Company Number: 2003167972US

PATIENT

DRUGS (1)
  1. DEPO-PROVERA [Suspect]
     Dosage: LAST
     Dates: start: 20030501, end: 20030501

REACTIONS (1)
  - INJECTION SITE REACTION [None]
